FAERS Safety Report 5052817-0 (Version None)
Quarter: 2006Q3

REPORT INFORMATION
  Report Type: 
  Country: None (occurrence: None)
  Receive Date: 20060717
  Receipt Date: 20060316
  Transmission Date: 20061208
  Serious: Yes (Other)
  Sender: FDA-Public Use
  Company Number: 2006GB00476

PATIENT
  Age: 46 Year
  Sex: Female
  Weight: 72.3 kg

DRUGS (5)
  1. SEROQUEL [Suspect]
     Indication: PSYCHOTIC DISORDER
     Dosage: DOSE REDUCED TO 100MG BID
     Route: 048
     Dates: start: 20051019
  2. SEROQUEL [Suspect]
     Dosage: DOSE REDUCED FROM 400MG BID
     Route: 048
     Dates: end: 20060406
  3. ZYPREXA [Concomitant]
     Indication: PSYCHOTIC DISORDER
     Route: 048
     Dates: start: 20030306
  4. VALIUM [Concomitant]
     Indication: AGITATION
     Route: 048
     Dates: start: 20060126
  5. PRIADEL [Concomitant]
     Indication: BIPOLAR DISORDER
     Route: 048
     Dates: start: 20040309

REACTIONS (2)
  - BURNING SENSATION [None]
  - RESTLESS LEGS SYNDROME [None]
